FAERS Safety Report 7408993-5 (Version None)
Quarter: 2011Q2

REPORT INFORMATION
  Report Type: 
  Country: None (occurrence: None)
  Receive Date: 20110407
  Receipt Date: 20110407
  Transmission Date: 20111010
  Serious: Yes (Other)
  Sender: FDA-Public Use
  Company Number: None

PATIENT
  Age: 4 Year
  Sex: Male
  Weight: 18.7 kg

DRUGS (1)
  1. FLEBOGAMMA [Suspect]
     Indication: SECONDARY IMMUNODEFICIENCY
     Dosage: 7.5 GRAMS ONCE IV
     Route: 042
     Dates: start: 20110329, end: 20110329

REACTIONS (4)
  - COUGH [None]
  - ERYTHEMA [None]
  - BODY TEMPERATURE INCREASED [None]
  - INFUSION RELATED REACTION [None]
